FAERS Safety Report 9824213 (Version 1)
Quarter: 2014Q1

REPORT INFORMATION
  Report Type: Spontaneous
  Country: GB (occurrence: GB)
  Receive Date: 20140116
  Receipt Date: 20140116
  Transmission Date: 20141002
  Serious: Yes (Hospitalization)
  Sender: FDA-Public Use
  Company Number: GB-BRISTOL-MYERS SQUIBB COMPANY-19988989

PATIENT
  Age: 65 Year
  Sex: Male
  Weight: 88.5 kg

DRUGS (5)
  1. DAPAGLIFLOZIN [Suspect]
     Dates: start: 20131104
  2. RAMIPRIL [Concomitant]
     Dates: start: 20130906
  3. SITAGLIPTIN PHOSPHATE [Concomitant]
     Dates: start: 20130906, end: 20131125
  4. ASPIRIN [Concomitant]
     Dates: start: 20130906
  5. METFORMIN [Concomitant]
     Dates: start: 20130906

REACTIONS (4)
  - Atrial fibrillation [Unknown]
  - Diabetic ketoacidosis [Unknown]
  - Abdominal discomfort [Unknown]
  - Nausea [Unknown]
